FAERS Safety Report 10131859 (Version 1)
Quarter: 2014Q2

REPORT INFORMATION
  Report Type: Spontaneous
  Country: GB (occurrence: GB)
  Receive Date: 20140428
  Receipt Date: 20140428
  Transmission Date: 20141212
  Serious: Yes (Life-Threatening, Hospitalization, Disabling, Other)
  Sender: FDA-Public Use
  Company Number: GB-SA-2014SA048832

PATIENT
  Age: 66 Year
  Sex: Female
  Weight: 82 kg

DRUGS (13)
  1. RASBURICASE [Suspect]
     Indication: PROPHYLAXIS
     Route: 065
     Dates: end: 20140212
  2. RASBURICASE [Suspect]
     Indication: TUMOUR LYSIS SYNDROME
     Route: 065
     Dates: end: 20140212
  3. PONATINIB [Suspect]
     Indication: ACUTE LYMPHOCYTIC LEUKAEMIA
     Route: 048
     Dates: start: 20140212, end: 20140218
  4. ACICLOVIR [Concomitant]
  5. ASPIRIN [Concomitant]
  6. ATORVASTATIN [Concomitant]
  7. CLOPIDOGREL [Concomitant]
  8. CO-TRIMOXAZOLE [Concomitant]
  9. CYTARABINE [Concomitant]
  10. FONDAPARINUX [Concomitant]
  11. IDARUBICIN [Concomitant]
  12. MESALAZINE [Concomitant]
  13. URSODEOXYCHOLIC ACID [Concomitant]

REACTIONS (4)
  - Renal failure acute [Recovered/Resolved]
  - Cerebrovascular accident [Recovered/Resolved]
  - Confusional state [Recovered/Resolved]
  - Drug ineffective [Unknown]
